FAERS Safety Report 10066325 (Version 2)
Quarter: 2014Q2

REPORT INFORMATION
  Report Type: Other
  Country: US (occurrence: US)
  Receive Date: 20140408
  Receipt Date: 20140422
  Transmission Date: 20141212
  Serious: No
  Sender: FDA-Public Use
  Company Number: PHEH2014US006839

PATIENT
  Age: 13 Year
  Sex: Female

DRUGS (1)
  1. TOBI [Suspect]
     Indication: INFECTION
     Dosage: 300 MG/5ML, BID
     Route: 055

REACTIONS (1)
  - No adverse event [Unknown]
